FAERS Safety Report 8470601-2 (Version None)
Quarter: 2012Q2

REPORT INFORMATION
  Report Type: 
  Country: None (occurrence: None)
  Receive Date: 20120627
  Receipt Date: 20120620
  Transmission Date: 20120825
  Serious: Yes (Hospitalization, Other)
  Sender: FDA-Public Use
  Company Number: PHHY2012FR053966

PATIENT
  Sex: Male

DRUGS (1)
  1. RITALIN [Suspect]
     Dosage: UNK
     Route: 058
     Dates: start: 20120501, end: 20120610

REACTIONS (2)
  - INJECTION SITE ABSCESS [None]
  - INTENTIONAL DRUG MISUSE [None]
